FAERS Safety Report 9532212 (Version 1)
Quarter: 2013Q3

REPORT INFORMATION
  Report Type: Spontaneous
  Country: US (occurrence: US)
  Receive Date: 20130918
  Receipt Date: 20130918
  Transmission Date: 20140515
  Serious: Yes (Hospitalization)
  Sender: FDA-Public Use
  Company Number: US-ELI_LILLY_AND_COMPANY-US201309005334

PATIENT
  Sex: Female

DRUGS (17)
  1. FORTEO [Suspect]
     Indication: OSTEOGENESIS IMPERFECTA
     Dosage: 20 UG, QD
  2. CYMBALTA [Concomitant]
  3. METOPROLOL [Concomitant]
  4. SYNTHROID [Concomitant]
  5. AMIODARONE [Concomitant]
  6. MICARDIS [Concomitant]
  7. MAGNESIUM OXIDE [Concomitant]
  8. ASPIRIN [Concomitant]
     Dosage: 81 MG, UNK
  9. VITAMIN D [Concomitant]
  10. MULTIVITAMIN                       /00831701/ [Concomitant]
  11. FOLIC ACID [Concomitant]
  12. VITAMIN C                          /00008001/ [Concomitant]
  13. COLACE [Concomitant]
  14. MIRALAX                            /00754501/ [Concomitant]
  15. CALCIUM CARBONATE [Concomitant]
  16. PRAVASTATIN [Concomitant]
  17. VAGIFEM [Concomitant]

REACTIONS (3)
  - Hypercalcaemia [Unknown]
  - Delirium [Unknown]
  - Blood pressure increased [Unknown]
